FAERS Safety Report 6551029-9 (Version None)
Quarter: 2010Q1

REPORT INFORMATION
  Report Type: 
  Country: None (occurrence: None)
  Receive Date: 20100122
  Receipt Date: 20100122
  Transmission Date: 20100710
  Serious: Yes (Other)
  Sender: FDA-Public Use
  Company Number: None

PATIENT
  Age: 48 Year
  Sex: Female
  Weight: 54.4316 kg

DRUGS (2)
  1. TYLENOL (CAPLET) [Suspect]
     Indication: ARTHRALGIA
     Dosage: 2 CAPLETS EVERY 8 HOURS IM
     Route: 030
     Dates: start: 20091001, end: 20100120
  2. TYLENOL (CAPLET) [Suspect]
     Indication: FIBROMYALGIA
     Dosage: 2 CAPLETS EVERY 8 HOURS IM
     Route: 030
     Dates: start: 20091001, end: 20100120

REACTIONS (7)
  - ABDOMINAL PAIN [None]
  - DIARRHOEA [None]
  - HYPOAESTHESIA [None]
  - MALAISE [None]
  - OEDEMA PERIPHERAL [None]
  - PRODUCT QUALITY ISSUE [None]
  - WEIGHT DECREASED [None]
